FAERS Safety Report 8023750-7 (Version None)
Quarter: 2012Q1

REPORT INFORMATION
  Report Type: 
  Country: None (occurrence: None)
  Receive Date: 20120105
  Receipt Date: 20111228
  Transmission Date: 20120608
  Serious: Yes (Hospitalization)
  Sender: FDA-Public Use
  Company Number: HU-ELI_LILLY_AND_COMPANY-HU201201000034

PATIENT
  Age: 29 Year
  Sex: Female

DRUGS (2)
  1. MEDROL [Concomitant]
  2. ZYPREXA [Suspect]
     Dosage: 5 MG EACH MORNING, 10 MG EACH EVENING
     Route: 048
     Dates: start: 20111221

REACTIONS (2)
  - MUSCLE SPASMS [None]
  - EPISTAXIS [None]
